FAERS Safety Report 8004764-X (Version None)
Quarter: 2011Q4

REPORT INFORMATION
  Report Type: 
  Country: None (occurrence: None)
  Receive Date: 20111223
  Receipt Date: 20111212
  Transmission Date: 20120403
  Serious: Yes (Hospitalization)
  Sender: FDA-Public Use
  Company Number: CH-NOVOPROD-341184

PATIENT

DRUGS (5)
  1. GLICLAZIDE [Concomitant]
  2. VICTOZA [Suspect]
     Indication: DIABETES MELLITUS
     Dosage: 1.2 MG, QD
     Route: 058
     Dates: start: 20100618, end: 20110101
  3. TORSEMIDE [Concomitant]
  4. METFORMIN HCL [Concomitant]
  5. BISOPROLOL FUMARATE [Concomitant]

REACTIONS (2)
  - PANCREATITIS [None]
  - CHOLELITHIASIS [None]
